FAERS Safety Report 25066537 (Version 1)
Quarter: 2025Q1

REPORT INFORMATION
  Report Type: Report from Study
  Country: CN (occurrence: CN)
  Receive Date: 20250312
  Receipt Date: 20250312
  Transmission Date: 20250409
  Serious: Yes (Other)
  Sender: ROCHE
  Company Number: CN-ROCHE-10000223506

PATIENT
  Age: 44 Year
  Sex: Female

DRUGS (1)
  1. KADCYLA [Suspect]
     Active Substance: ADO-TRASTUZUMAB EMTANSINE
     Indication: Breast cancer
     Dosage: ON 11-JAN-2025, THE MOST RECENT DOSE (180 MG) OF STUDY DRUG WAS ADMINISTERED PRIOR TO NEUTROPHIL?COU
     Route: 042
     Dates: start: 20240525

REACTIONS (2)
  - Neutrophil count decreased [Not Recovered/Not Resolved]
  - Mucinous cystadenocarcinoma ovary [Not Recovered/Not Resolved]

NARRATIVE: CASE EVENT DATE: 20250208
